FAERS Safety Report 9539102 (Version 1)
Quarter: 2013Q3

REPORT INFORMATION
  Report Type: Spontaneous
  Country: US (occurrence: US)
  Receive Date: 20130920
  Receipt Date: 20130920
  Transmission Date: 20140515
  Serious: Yes (Other)
  Sender: FDA-Public Use
  Company Number: US-BAYER-2013-113690

PATIENT
  Age: 37 Year
  Sex: Female

DRUGS (4)
  1. YAZ [Suspect]
  2. CEFDINIR [Concomitant]
     Dosage: UNK
     Dates: start: 20080102
  3. LEVAQUIN [Concomitant]
     Dosage: UNK
     Dates: start: 20080125
  4. ADVIL [Concomitant]

REACTIONS (3)
  - Deep vein thrombosis [None]
  - Thrombophlebitis superficial [None]
  - Thrombosis [None]
